FAERS Safety Report 9133377 (Version 1)
Quarter: 2013Q1

REPORT INFORMATION
  Report Type: Report from Study
  Country: FR (occurrence: FR)
  Receive Date: 20130301
  Receipt Date: 20130301
  Transmission Date: 20140127
  Serious: Yes (Death, Hospitalization)
  Sender: FDA-Public Use
  Company Number: PHHY2010FR70109

PATIENT
  Age: 87 Year
  Sex: Female

DRUGS (9)
  1. STI571 [Suspect]
     Indication: CHRONIC MYELOID LEUKAEMIA
     Dosage: 400 MG, UNK
     Route: 048
     Dates: start: 20070420, end: 20090708
  2. SPRYCEL [Suspect]
     Dosage: 70 MG, QD
     Dates: start: 200907
  3. HEMIGOXINE [Concomitant]
  4. AMLOR [Concomitant]
  5. NEURONTIN [Concomitant]
  6. INEXIUM [Concomitant]
  7. GAVISCON [Concomitant]
  8. TRANXENE [Concomitant]
  9. XALATAN [Concomitant]

REACTIONS (27)
  - Cardiac failure [Fatal]
  - Arrhythmia [Fatal]
  - Pulmonary embolism [Fatal]
  - Tachycardia [Fatal]
  - Cardiac failure acute [Fatal]
  - General physical health deterioration [Fatal]
  - Left ventricular hypertrophy [Fatal]
  - Left atrial dilatation [Fatal]
  - Myocardial infarction [Fatal]
  - Aortic valve incompetence [Fatal]
  - Atrial fibrillation [Fatal]
  - Angina pectoris [Fatal]
  - Sense of oppression [Fatal]
  - Pulmonary oedema [Fatal]
  - Fatigue [Fatal]
  - Lung disorder [Unknown]
  - Lactose intolerance [Unknown]
  - Diarrhoea [Recovered/Resolved]
  - Restless legs syndrome [Unknown]
  - Fall [Recovering/Resolving]
  - Renal tubular necrosis [Recovered/Resolved]
  - Pneumonia klebsiella [Recovered/Resolved]
  - Pyelonephritis [Recovered/Resolved]
  - Musculoskeletal pain [Unknown]
  - Hyponatraemia [Unknown]
  - Hypokalaemia [Unknown]
  - Blood creatinine decreased [Unknown]
